FAERS Safety Report 23083203 (Version 1)
Quarter: 2023Q4

REPORT INFORMATION
  Report Type: Spontaneous
  Country: US (occurrence: US)
  Receive Date: 20231019
  Receipt Date: 20231019
  Transmission Date: 20240109
  Serious: Yes (Death, Other)
  Sender: FDA-Public Use
  Company Number: US-AMGEN-USASP2023183130

PATIENT
  Age: 25 Year
  Sex: Female

DRUGS (6)
  1. BEVACIZUMAB [Suspect]
     Active Substance: BEVACIZUMAB
     Indication: Lung carcinoma cell type unspecified stage IV
     Dosage: UNK (6 CYCLES)
     Route: 065
  2. BEVACIZUMAB [Suspect]
     Active Substance: BEVACIZUMAB
     Indication: Adenocarcinoma
  3. CARBOPLATIN [Concomitant]
     Active Substance: CARBOPLATIN
     Dosage: UNK  (6 CYCLES)
     Route: 065
  4. PACLITAXEL [Concomitant]
     Active Substance: PACLITAXEL
     Dosage: UNK  (6 CYCLES)
     Route: 065
  5. ATEZOLIZUMAB [Concomitant]
     Active Substance: ATEZOLIZUMAB
     Dosage: UNK  (6 CYCLES)
     Route: 065
  6. PEMETREXED [Concomitant]
     Active Substance: PEMETREXED
     Dosage: UNK
     Route: 065

REACTIONS (3)
  - Adenocarcinoma [Fatal]
  - Immune-mediated lung disease [Unknown]
  - Therapy partial responder [Unknown]
